FAERS Safety Report 10995999 (Version 2)
Quarter: 2015Q2

REPORT INFORMATION
  Report Type: Spontaneous
  Country: US (occurrence: US)
  Receive Date: 20150407
  Receipt Date: 20150525
  Transmission Date: 20150821
  Serious: No
  Sender: FDA-Public Use
  Company Number: US-JNJFOC-20120516209

PATIENT
  Age: 73 Year
  Sex: Male
  Weight: 81.65 kg

DRUGS (8)
  1. REMICADE [Suspect]
     Active Substance: INFLIXIMAB
     Indication: NECROBIOSIS
     Route: 042
     Dates: start: 20120416
  2. PLAQUENIL [Concomitant]
     Active Substance: HYDROXYCHLOROQUINE SULFATE
     Indication: RHEUMATOID ARTHRITIS
     Route: 065
  3. REMICADE [Suspect]
     Active Substance: INFLIXIMAB
     Indication: NECROBIOSIS
     Route: 042
     Dates: start: 201204
  4. REMICADE [Suspect]
     Active Substance: INFLIXIMAB
     Indication: RHEUMATOID ARTHRITIS
     Route: 042
     Dates: start: 201204, end: 20120428
  5. REMICADE [Suspect]
     Active Substance: INFLIXIMAB
     Indication: NECROBIOSIS
     Route: 042
     Dates: start: 201204, end: 20120428
  6. IMODIUM [Concomitant]
     Active Substance: LOPERAMIDE HYDROCHLORIDE
     Route: 065
  7. REMICADE [Suspect]
     Active Substance: INFLIXIMAB
     Indication: RHEUMATOID ARTHRITIS
     Route: 042
     Dates: start: 20120416
  8. REMICADE [Suspect]
     Active Substance: INFLIXIMAB
     Indication: RHEUMATOID ARTHRITIS
     Route: 042
     Dates: start: 201204

REACTIONS (8)
  - Dermatitis bullous [Recovering/Resolving]
  - Erythema [Not Recovered/Not Resolved]
  - Skin discolouration [Recovered/Resolved]
  - Nail discolouration [Recovering/Resolving]
  - Onycholysis [Not Recovered/Not Resolved]
  - Drug effect decreased [Recovering/Resolving]
  - Skin exfoliation [Recovering/Resolving]
  - Peripheral swelling [Recovering/Resolving]

NARRATIVE: CASE EVENT DATE: 2012
